FAERS Safety Report 23564168 (Version 1)
Quarter: 2024Q1

REPORT INFORMATION
  Report Type: Report from Study
  Country: CA (occurrence: CA)
  Receive Date: 20240226
  Receipt Date: 20240226
  Transmission Date: 20240410
  Serious: Yes (Other)
  Sender: FDA-Public Use
  Company Number: CA-BAUSCH-BL-2024-002923

PATIENT
  Age: 28 Year
  Sex: Male

DRUGS (2)
  1. SILIQ [Suspect]
     Active Substance: BRODALUMAB
     Indication: Psoriasis
     Dosage: 210 MG / 1.5 ML, WEEKLY, WEEK 0- WEEK 2
     Route: 058
     Dates: start: 20230720, end: 202308
  2. SILIQ [Suspect]
     Active Substance: BRODALUMAB
     Dosage: 210 MG / 1.5 ML,
     Route: 058
     Dates: start: 2023, end: 202312

REACTIONS (4)
  - Ligament operation [Unknown]
  - Weight increased [Unknown]
  - Mood swings [Unknown]
  - Intentional product use issue [Unknown]

NARRATIVE: CASE EVENT DATE: 20231201
